FAERS Safety Report 20654054 (Version 1)
Quarter: 2022Q1

REPORT INFORMATION
  Report Type: Spontaneous
  Country: US (occurrence: None)
  Receive Date: 20220329
  Receipt Date: 20220329
  Transmission Date: 20220424
  Serious: Yes (Other)
  Sender: FDA-Public Use
  Company Number: None

PATIENT
  Age: 46 Year
  Sex: Male
  Weight: 85.73 kg

DRUGS (1)
  1. CASIRIVIMAB [Suspect]
     Active Substance: CASIRIVIMAB

REACTIONS (2)
  - Neuralgia [None]
  - Abdominal pain [None]

NARRATIVE: CASE EVENT DATE: 20220107
